FAERS Safety Report 5413384-2 (Version None)
Quarter: 2007Q3

REPORT INFORMATION
  Report Type: 
  Country: None (occurrence: None)
  Receive Date: 20070814
  Receipt Date: 20070803
  Transmission Date: 20080115
  Serious: Yes (Hospitalization)
  Sender: FDA-Public Use
  Company Number: JP-JNJFOC-20070801209

PATIENT
  Age: 55 Year
  Sex: Male

DRUGS (6)
  1. ITRACONAZOLE [Suspect]
     Indication: LYMPHOMA
     Route: 048
  2. LORATADINE [Concomitant]
     Route: 065
  3. CHLORPHENIRAMINE MALEATE [Concomitant]
     Route: 065
  4. PRANLUKAST HYDRATE [Concomitant]
     Route: 065
  5. RABEPRAZOLE SODIUM [Concomitant]
     Route: 065
  6. AMLODIPINE [Concomitant]
     Route: 065

REACTIONS (1)
  - PANCYTOPENIA [None]
